FAERS Safety Report 17352677 (Version 1)
Quarter: 2020Q1

REPORT INFORMATION
  Report Type: Spontaneous
  Country: US (occurrence: US)
  Receive Date: 20200131
  Receipt Date: 20200131
  Transmission Date: 20200409
  Serious: Yes (Other)
  Sender: FDA-Public Use
  Company Number: US-JNJFOC-20200132625

PATIENT
  Sex: Female

DRUGS (1)
  1. NEUTROGENA OIL FREE ACNE WASH PINK GRAPEFRUIT FOAMING SCRUB [Suspect]
     Active Substance: SALICYLIC ACID
     Indication: PRODUCT USED FOR UNKNOWN INDICATION
     Route: 061
     Dates: start: 202001

REACTIONS (2)
  - Chemical burn [Not Recovered/Not Resolved]
  - Application site swelling [Unknown]

NARRATIVE: CASE EVENT DATE: 202001
